FAERS Safety Report 16892944 (Version 26)
Quarter: 2022Q2

REPORT INFORMATION
  Report Type: Report from Study
  Country: CO (occurrence: CO)
  Receive Date: 20191007
  Receipt Date: 20220606
  Transmission Date: 20220720
  Serious: Yes (Other)
  Sender: FDA-Public Use
  Company Number: CO-ABBVIE-19K-036-2953850-00

PATIENT
  Sex: Female
  Weight: 97 kg

DRUGS (11)
  1. HUMIRA [Suspect]
     Active Substance: ADALIMUMAB
     Indication: Rheumatoid arthritis
     Route: 058
     Dates: start: 20190814, end: 20200710
  2. HUMIRA [Suspect]
     Active Substance: ADALIMUMAB
     Route: 058
     Dates: end: 20210222
  3. HUMIRA [Suspect]
     Active Substance: ADALIMUMAB
     Route: 058
     Dates: start: 2021, end: 20210608
  4. HUMIRA [Suspect]
     Active Substance: ADALIMUMAB
     Route: 058
     Dates: start: 2021, end: 20211205
  5. HUMIRA [Suspect]
     Active Substance: ADALIMUMAB
     Route: 058
     Dates: end: 20220518
  6. METHOTREXATE [Suspect]
     Active Substance: METHOTREXATE
     Indication: Product used for unknown indication
     Route: 065
  7. LOSARTAN [Concomitant]
     Active Substance: LOSARTAN
     Indication: Hypertension
     Route: 048
     Dates: start: 2016
  8. ACETAMINOPHEN [Concomitant]
     Active Substance: ACETAMINOPHEN
     Indication: Headache
     Route: 048
     Dates: start: 20200703
  9. ALBUTEROL [Concomitant]
     Active Substance: ALBUTEROL
     Indication: Pulmonary embolism
     Dosage: AT NIGHT
  10. PREDNISOLONE [Concomitant]
     Active Substance: PREDNISOLONE
     Indication: Product used for unknown indication
  11. AMITRIPTYLINE [Concomitant]
     Active Substance: AMITRIPTYLINE
     Indication: Sleep disorder
     Dosage: 1 TABLET AT NIGHT

REACTIONS (56)
  - Gait disturbance [Not Recovered/Not Resolved]
  - Choking [Not Recovered/Not Resolved]
  - Depression [Recovering/Resolving]
  - Arthropathy [Not Recovered/Not Resolved]
  - Tachycardia [Recovered/Resolved]
  - Goitre [Unknown]
  - Haemoptysis [Recovering/Resolving]
  - Somnolence [Not Recovered/Not Resolved]
  - Lymphadenopathy [Unknown]
  - Chills [Recovering/Resolving]
  - Dizziness [Recovering/Resolving]
  - Mobility decreased [Unknown]
  - Lung disorder [Unknown]
  - Pharyngeal mass [Not Recovered/Not Resolved]
  - Asthenia [Not Recovered/Not Resolved]
  - Blood pressure decreased [Not Recovered/Not Resolved]
  - Trigger finger [Not Recovered/Not Resolved]
  - Aphasia [Unknown]
  - Thyroid mass [Unknown]
  - Joint range of motion decreased [Unknown]
  - Pneumonitis [Unknown]
  - Pulmonary pain [Not Recovered/Not Resolved]
  - Tachyarrhythmia [Unknown]
  - Tension [Not Recovered/Not Resolved]
  - Insomnia [Not Recovered/Not Resolved]
  - Sleep disorder [Not Recovered/Not Resolved]
  - Fibromyalgia [Unknown]
  - Inflammation [Not Recovered/Not Resolved]
  - Fall [Recovering/Resolving]
  - Blood test abnormal [Unknown]
  - Pyrexia [Recovered/Resolved]
  - Spinal pain [Not Recovered/Not Resolved]
  - Muscle spasms [Not Recovered/Not Resolved]
  - Peripheral swelling [Not Recovered/Not Resolved]
  - Musculoskeletal pain [Not Recovered/Not Resolved]
  - Respiratory tract infection [Unknown]
  - Abdominal discomfort [Recovering/Resolving]
  - Pelvic pain [Recovering/Resolving]
  - Back pain [Not Recovered/Not Resolved]
  - Pelvic pain [Unknown]
  - Influenza like illness [Recovering/Resolving]
  - Rheumatoid arthritis [Not Recovered/Not Resolved]
  - Tachycardia [Not Recovered/Not Resolved]
  - Chest pain [Not Recovered/Not Resolved]
  - Arthritis [Not Recovered/Not Resolved]
  - Arthralgia [Not Recovered/Not Resolved]
  - Poor quality sleep [Not Recovered/Not Resolved]
  - Swelling [Not Recovered/Not Resolved]
  - Furuncle [Recovered/Resolved]
  - Fatigue [Not Recovered/Not Resolved]
  - Pruritus [Not Recovered/Not Resolved]
  - Dyspnoea [Not Recovered/Not Resolved]
  - Pain [Not Recovered/Not Resolved]
  - Pain [Unknown]
  - Musculoskeletal pain [Unknown]
  - Somnolence [Not Recovered/Not Resolved]

NARRATIVE: CASE EVENT DATE: 20190101
